FAERS Safety Report 6180674-8 (Version None)
Quarter: 2009Q2

REPORT INFORMATION
  Report Type: 
  Country: None (occurrence: None)
  Receive Date: 20090417
  Receipt Date: 20090407
  Transmission Date: 20091009
  Serious: Yes (Hospitalization)
  Sender: FDA-Public Use
  Company Number: 200914656

PATIENT
  Sex: Female
  Weight: 64.4108 kg

DRUGS (2)
  1. CARIMUNE [Suspect]
     Indication: IMMUNODEFICIENCY
     Dosage: (24 GM EVERY MONTH INTRAVENOUS), (24 GM EVERY MONTH INTRAVENOUS)
     Route: 042
     Dates: start: 20090131, end: 20090131
  2. CARIMUNE [Suspect]

REACTIONS (6)
  - BRADYCARDIA [None]
  - CHEST PAIN [None]
  - HYPERHIDROSIS [None]
  - HYPOTENSION [None]
  - INCORRECT DRUG ADMINISTRATION RATE [None]
  - INFUSION RELATED REACTION [None]
